FAERS Safety Report 23618447 (Version 1)
Quarter: 2024Q1

REPORT INFORMATION
  Report Type: Spontaneous
  Country: PT (occurrence: PT)
  Receive Date: 20240311
  Receipt Date: 20240311
  Transmission Date: 20240409
  Serious: Yes (Hospitalization)
  Sender: FDA-Public Use
  Company Number: PT-STRIDES ARCOLAB LIMITED-2024SP002707

PATIENT
  Age: 69 Year
  Sex: Male

DRUGS (1)
  1. METHOTREXATE [Suspect]
     Active Substance: METHOTREXATE
     Indication: Psoriasis
     Dosage: 12.5 MILLIGRAM,  WEEKLY BUT THE PATIENT HAD BEEN RECEIVING ACCIDENTAL METHOTREXATE 12.5MG DAILY INST
     Route: 065

REACTIONS (11)
  - Accidental overdose [Unknown]
  - Inappropriate schedule of product administration [Unknown]
  - Bicytopenia [Recovered/Resolved]
  - Mucosal inflammation [Recovered/Resolved]
  - Stomatitis [Recovered/Resolved]
  - Myelosuppression [Recovered/Resolved]
  - Toxicity to various agents [Unknown]
  - Pancytopenia [Recovered/Resolved]
  - Neutropenia [Recovered/Resolved]
  - Aphthous ulcer [Recovered/Resolved]
  - Skin erosion [Recovered/Resolved]
